FAERS Safety Report 9152869 (Version 1)
Quarter: 2013Q1

REPORT INFORMATION
  Report Type: Spontaneous
  Country: FR (occurrence: FR)
  Receive Date: 20130309
  Receipt Date: 20130309
  Transmission Date: 20140127
  Serious: Yes (Hospitalization)
  Sender: FDA-Public Use
  Company Number: FR-UCBSA-080063

PATIENT
  Age: 43 Year
  Sex: Male

DRUGS (3)
  1. KEPPRA [Suspect]
     Indication: EPILEPSY
     Route: 048
  2. TEGRETOL [Suspect]
     Indication: EPILEPSY
     Dosage: 400MG+200MG+400MG
     Route: 048
     Dates: end: 20130102
  3. TEGRETOL [Suspect]
     Indication: EPILEPSY
     Dosage: 1 G IN THE MORNING
     Route: 048
     Dates: start: 20130103, end: 20130103

REACTIONS (2)
  - Epilepsy [Recovered/Resolved]
  - Drug dose omission [Unknown]
